FAERS Safety Report 14921645 (Version 1)
Quarter: 2018Q2

REPORT INFORMATION
  Report Type: Spontaneous
  Country: TW (occurrence: TW)
  Receive Date: 20180522
  Receipt Date: 20180522
  Transmission Date: 20180711
  Serious: Yes (Other)
  Sender: FDA-Public Use
  Company Number: TW-BRISTOL-MYERS SQUIBB COMPANY-BMS-2018-045567

PATIENT
  Age: 52 Year
  Sex: Male
  Weight: 50 kg

DRUGS (4)
  1. IFOSFAMIDE. [Suspect]
     Active Substance: IFOSFAMIDE
     Indication: METASTATIC SQUAMOUS CELL CARCINOMA
     Dosage: 1500 MG/M2, Q3WK ON DAY 1 AND DAY 2
     Route: 065
  2. ETOPOSIDE. [Suspect]
     Active Substance: ETOPOSIDE
     Indication: METASTATIC SQUAMOUS CELL CARCINOMA
     Dosage: 40 MG/M2, QCYCLE ON DAY 1 AND DAY 2 EVERY THREE WEEKS
     Route: 065
  3. NIVOLUMAB [Suspect]
     Active Substance: NIVOLUMAB
     Indication: METASTATIC SQUAMOUS CELL CARCINOMA
     Dosage: 2 MG/KG, QCYCLE ON DAY 1
     Route: 065
  4. CETUXIMAB. [Suspect]
     Active Substance: CETUXIMAB
     Indication: METASTATIC SQUAMOUS CELL CARCINOMA
     Dosage: UNK
     Route: 065

REACTIONS (5)
  - Prescribed underdose [Unknown]
  - Product use in unapproved indication [Unknown]
  - Acute kidney injury [Unknown]
  - Off label use [Unknown]
  - Drug ineffective [Unknown]
